FAERS Safety Report 4917366-6 (Version None)
Quarter: 2006Q1

REPORT INFORMATION
  Report Type: 
  Country: None (occurrence: None)
  Receive Date: 20060221
  Receipt Date: 20060106
  Transmission Date: 20060701
  Serious: Yes (Other)
  Sender: FDA-Public Use
  Company Number: 431150

PATIENT
  Age: 83 Year
  Sex: Female
  Weight: 65.5 kg

DRUGS (4)
  1. COREG [Suspect]
     Indication: FLUID RETENTION
     Dosage: 6.25MG TWICE PER DAY
     Route: 048
  2. COUMADIN [Concomitant]
  3. DIGOXIN [Concomitant]
  4. DIURETIC [Concomitant]

REACTIONS (11)
  - ASTHENIA [None]
  - BLOOD CALCIUM INCREASED [None]
  - BLOOD PRESSURE INCREASED [None]
  - BLOOD UREA INCREASED [None]
  - BRAIN NATRIURETIC PEPTIDE INCREASED [None]
  - DEHYDRATION [None]
  - DIZZINESS [None]
  - PLEURAL EFFUSION [None]
  - THERAPEUTIC RESPONSE DECREASED [None]
  - VISION BLURRED [None]
  - WEIGHT DECREASED [None]
